FAERS Safety Report 13113295 (Version 1)
Quarter: 2017Q1

REPORT INFORMATION
  Report Type: Spontaneous
  Country: US (occurrence: US)
  Receive Date: 20170113
  Receipt Date: 20170113
  Transmission Date: 20170428
  Serious: No
  Sender: FDA-Public Use
  Company Number: US-009507513-1701USA004612

PATIENT
  Age: 31 Year
  Sex: Male

DRUGS (1)
  1. PROVENTIL [Suspect]
     Active Substance: ALBUTEROL
     Indication: ASTHMA
     Dosage: 90 MICROGRAM/1-2 PUFFS EVERY 4 TO 6 HOURS AS NEEDED
     Route: 055

REACTIONS (5)
  - Wheezing [Recovering/Resolving]
  - Cough [Recovering/Resolving]
  - Product quality issue [Unknown]
  - Drug dose omission [Unknown]
  - Secretion discharge [Recovering/Resolving]

NARRATIVE: CASE EVENT DATE: 20170101
